FAERS Safety Report 13391278 (Version 1)
Quarter: 2017Q1

REPORT INFORMATION
  Report Type: Spontaneous
  Country: SE (occurrence: SE)
  Receive Date: 20170331
  Receipt Date: 20170331
  Transmission Date: 20170429
  Serious: Yes (Hospitalization, Other)
  Sender: FDA-Public Use
  Company Number: SE-PFIZER INC-2017138229

PATIENT
  Age: 71 Year
  Sex: Male

DRUGS (15)
  1. CORDARONE [Suspect]
     Active Substance: AMIODARONE HYDROCHLORIDE
     Indication: ARRHYTHMIA
     Dosage: 200 MG, DAILY
     Route: 048
     Dates: start: 20130315, end: 20150203
  2. FURIX [Concomitant]
     Active Substance: FUROSEMIDE
     Dosage: UNK
  3. BISOCARD [Concomitant]
     Active Substance: BISOPROLOL
     Dosage: UNK
  4. ALLOPURINOL NORDIC DRUGS [Concomitant]
     Dosage: UNK
  5. CLAFORAN [Concomitant]
     Active Substance: CEFOTAXIME SODIUM
     Dosage: UNK
  6. INSPRA [Concomitant]
     Active Substance: EPLERENONE
     Dosage: UNK
  7. NITROLINGUAL [Concomitant]
     Active Substance: NITROGLYCERIN
     Dosage: UNK
  8. STILNOCT [Concomitant]
     Active Substance: ZOLPIDEM TARTRATE
     Dosage: UNK
  9. CANDESARTAN ASPEN [Concomitant]
     Dosage: UNK
  10. MORFIN MEDA [Concomitant]
     Active Substance: MORPHINE SULFATE
     Dosage: UNK
  11. SELOKEN [Concomitant]
     Active Substance: METOPROLOL
     Dosage: UNK
  12. WARAN [Concomitant]
     Active Substance: WARFARIN SODIUM
     Dosage: UNK
  13. SIMVASTATIN. [Concomitant]
     Active Substance: SIMVASTATIN
     Dosage: UNK
  14. ALVEDON [Concomitant]
     Active Substance: ACETAMINOPHEN
     Dosage: UNK
  15. ATROVENT [Concomitant]
     Active Substance: IPRATROPIUM BROMIDE
     Dosage: UNK

REACTIONS (12)
  - Fatigue [Unknown]
  - N-terminal prohormone brain natriuretic peptide increased [Unknown]
  - Hyperthyroidism [Unknown]
  - Pyrexia [Unknown]
  - Pulmonary oedema [Unknown]
  - Hyperkalaemia [Unknown]
  - Dyspnoea [Unknown]
  - Atrial fibrillation [Unknown]
  - Moraxella infection [Unknown]
  - Blood creatinine increased [Recovered/Resolved]
  - Nasopharyngitis [Unknown]
  - Ventricular tachycardia [Unknown]

NARRATIVE: CASE EVENT DATE: 2015
